FAERS Safety Report 8275211-8 (Version None)
Quarter: 2012Q2

REPORT INFORMATION
  Report Type: 
  Country: None (occurrence: None)
  Receive Date: 20120411
  Receipt Date: 20120402
  Transmission Date: 20120825
  Serious: Yes (Other)
  Sender: FDA-Public Use
  Company Number: US-BAYER-2012-032342

PATIENT
  Age: 29 Year
  Sex: Female
  Weight: 54 kg

DRUGS (2)
  1. MULTI-VITAMINS [Suspect]
     Dosage: UNK
     Route: 048
  2. ORAL CONTRACEPTIVE NOS [Concomitant]

REACTIONS (4)
  - WHEEZING [None]
  - CHOKING [None]
  - ASPIRATION [None]
  - DYSPNOEA [None]
